FAERS Safety Report 13736656 (Version 1)
Quarter: 2017Q3

REPORT INFORMATION
  Report Type: Spontaneous
  Country: US (occurrence: US)
  Receive Date: 20170710
  Receipt Date: 20170710
  Transmission Date: 20171127
  Serious: No
  Sender: FDA-Public Use
  Company Number: US-ALLERGAN-1713537US

PATIENT
  Sex: Female

DRUGS (3)
  1. VRAYLAR [Suspect]
     Active Substance: CARIPRAZINE
     Dosage: UNK UNK, UNKNOWN
     Route: 065
  2. VRAYLAR [Suspect]
     Active Substance: CARIPRAZINE
     Dosage: 6 MG, UNKNOWN
     Route: 065
  3. VRAYLAR [Suspect]
     Active Substance: CARIPRAZINE
     Indication: BIPOLAR I DISORDER
     Dosage: UNK UNK, UNKNOWN
     Route: 065
     Dates: end: 201703

REACTIONS (1)
  - Mania [Unknown]
